FAERS Safety Report 7867901-3 (Version None)
Quarter: 2011Q4

REPORT INFORMATION
  Report Type: 
  Country: None (occurrence: None)
  Receive Date: 20111028
  Receipt Date: 20111016
  Transmission Date: 20120403
  Serious: Yes (Other)
  Sender: FDA-Public Use
  Company Number: DE-UCBSA-044275

PATIENT
  Age: 10 Year
  Sex: Male
  Weight: 36 kg

DRUGS (1)
  1. METHYLPHENIDATE HCL [Suspect]
     Route: 048
     Dates: start: 20111016

REACTIONS (1)
  - ACCIDENTAL EXPOSURE [None]
